FAERS Safety Report 14315462 (Version 2)
Quarter: 2018Q1

REPORT INFORMATION
  Report Type: Spontaneous
  Country: CH (occurrence: CH)
  Receive Date: 20171221
  Receipt Date: 20180104
  Transmission Date: 20180509
  Serious: Yes (Hospitalization, Other)
  Sender: FDA-Public Use
  Company Number: CH-INDIVIOR LIMITED-INDV-106966-2017

PATIENT
  Age: 81 Year
  Sex: Female

DRUGS (22)
  1. LISINOPRIL. [Suspect]
     Active Substance: LISINOPRIL
     Indication: HYPERTENSION
     Dosage: UNK
     Route: 048
     Dates: start: 20171028, end: 20171030
  2. RISPERDAL [Suspect]
     Active Substance: RISPERIDONE
     Dosage: HALF DOSES, UNK
     Route: 048
     Dates: start: 20171030, end: 20171101
  3. LAXOBERON [Concomitant]
     Active Substance: SODIUM PICOSULFATE
     Indication: PRODUCT USED FOR UNKNOWN INDICATION
     Dosage: UNK
     Route: 065
  4. TORASEMIDE [Suspect]
     Active Substance: TORSEMIDE
     Dosage: DECREASED TO 5 MG/D, UNK
     Route: 048
     Dates: start: 20171114
  5. TEMGESIC [Suspect]
     Active Substance: BUPRENORPHINE HYDROCHLORIDE
     Indication: MYALGIA
     Dosage: 0.1+0.2 MG, UNK
     Route: 060
     Dates: start: 20171028, end: 20171028
  6. NITROGLYCERINE [Suspect]
     Active Substance: NITROGLYCERIN
     Indication: CARDIAC FAILURE ACUTE
     Dosage: UNK
     Route: 040
     Dates: start: 20171028, end: 20171028
  7. TORASEMIDE [Suspect]
     Active Substance: TORSEMIDE
     Indication: HYPERTENSION
     Dosage: UNK
     Route: 048
     Dates: start: 20171028, end: 2017
  8. VALIUM [Suspect]
     Active Substance: DIAZEPAM
     Indication: MYALGIA
     Dosage: UNK
     Route: 048
     Dates: start: 20171028, end: 20171028
  9. RISPERDAL [Suspect]
     Active Substance: RISPERIDONE
     Dosage: PROGRESSIVE DECREASE, UNK
     Route: 048
     Dates: start: 20171108, end: 20171113
  10. ASPIRIN CARDIO [Concomitant]
     Active Substance: ASPIRIN
     Indication: PRODUCT USED FOR UNKNOWN INDICATION
     Dosage: UNK
     Route: 065
  11. PREGABALIN. [Concomitant]
     Active Substance: PREGABALIN
     Indication: PRODUCT USED FOR UNKNOWN INDICATION
     Dosage: UNK
     Route: 065
  12. MABTHERA [Concomitant]
     Active Substance: RITUXIMAB
     Indication: PRODUCT USED FOR UNKNOWN INDICATION
     Dosage: UNK
     Route: 065
     Dates: start: 20171114, end: 20171114
  13. REQUIP [Concomitant]
     Active Substance: ROPINIROLE HYDROCHLORIDE
     Indication: PRODUCT USED FOR UNKNOWN INDICATION
     Dosage: UNK
     Route: 065
  14. DAFALGAN [Concomitant]
     Active Substance: ACETAMINOPHEN
     Indication: PRODUCT USED FOR UNKNOWN INDICATION
     Dosage: UNK
     Route: 065
  15. SINTROM [Concomitant]
     Active Substance: ACENOCOUMAROL
     Indication: PRODUCT USED FOR UNKNOWN INDICATION
     Dosage: UNK
     Route: 065
     Dates: start: 20171001
  16. IMUREK                             /00001501/ [Concomitant]
     Active Substance: AZATHIOPRINE
     Indication: PRODUCT USED FOR UNKNOWN INDICATION
     Dosage: UNK
     Route: 065
  17. CALCIMAGON D3 [Concomitant]
     Active Substance: CALCIUM\CHOLECALCIFEROL
     Indication: PRODUCT USED FOR UNKNOWN INDICATION
     Dosage: UNK
     Route: 065
  18. NEXIUM [Concomitant]
     Active Substance: ESOMEPRAZOLE MAGNESIUM
     Indication: PRODUCT USED FOR UNKNOWN INDICATION
     Dosage: UNK
     Route: 065
     Dates: end: 20171116
  19. RISPERDAL [Suspect]
     Active Substance: RISPERIDONE
     Indication: AGITATION
     Dosage: PREVIOUSLY AT HIGHER, UNK
     Route: 048
     Dates: start: 20171028, end: 20171030
  20. ATORVASTATINE                      /01326101/ [Concomitant]
     Active Substance: ATORVASTATIN
     Indication: PRODUCT USED FOR UNKNOWN INDICATION
     Dosage: UNK
     Route: 065
  21. BELOC ZOK [Concomitant]
     Active Substance: METOPROLOL SUCCINATE
     Indication: PRODUCT USED FOR UNKNOWN INDICATION
     Dosage: UNK
     Route: 065
  22. CIRCADIN [Concomitant]
     Active Substance: MELATONIN
     Indication: PRODUCT USED FOR UNKNOWN INDICATION
     Dosage: UNK
     Route: 065
     Dates: start: 20171005

REACTIONS (5)
  - Acute kidney injury [Recovered/Resolved]
  - Cardiac failure [Unknown]
  - Disturbance in attention [Recovered/Resolved]
  - Abnormal behaviour [Unknown]
  - Parkinsonism [Recovered/Resolved]

NARRATIVE: CASE EVENT DATE: 20171028
